FAERS Safety Report 9570968 (Version 1)
Quarter: 2013Q3

REPORT INFORMATION
  Report Type: Spontaneous
  Country: US (occurrence: None)
  Receive Date: 20130927
  Receipt Date: 20130927
  Transmission Date: 20140515
  Serious: No
  Sender: FDA-Public Use
  Company Number: None

PATIENT
  Age: 65 None
  Sex: Female

DRUGS (1)
  1. WARFARIN [Suspect]
     Dosage: TAKE AS DIRECTED, 1 TABLET 6 DAYS AND 2 TABLETS (4 MG) 1 DAY
     Dates: start: 20130828

REACTIONS (4)
  - Contusion [None]
  - Vascular rupture [None]
  - International normalised ratio increased [None]
  - Prothrombin time prolonged [None]
